FAERS Safety Report 21605967 (Version 1)
Quarter: 2022Q4

REPORT INFORMATION
  Report Type: Spontaneous
  Country: US (occurrence: None)
  Receive Date: 20221116
  Receipt Date: 20221116
  Transmission Date: 20230113
  Serious: No
  Sender: FDA-Public Use
  Company Number: None

PATIENT
  Sex: Female

DRUGS (6)
  1. IBRANCE [Suspect]
     Active Substance: PALBOCICLIB
     Indication: Breast cancer female
     Dosage: OTHER FREQUENCY : 21DON7DOFF;?
     Route: 048
     Dates: start: 202204
  2. AMLODIPINE [Concomitant]
  3. ATORVASTATIN [Concomitant]
  4. HYDROCHLOROTHIAZIDE [Concomitant]
  5. LEVOTHYROXINE [Concomitant]
  6. VITAMIN D [Concomitant]

REACTIONS (2)
  - Alopecia [None]
  - White blood cell count abnormal [None]
